FAERS Safety Report 23722114 (Version 2)
Quarter: 2024Q3

REPORT INFORMATION
  Report Type: Report from Study
  Country: US (occurrence: US)
  Receive Date: 20240409
  Receipt Date: 20240810
  Transmission Date: 20241017
  Serious: Yes (Hospitalization)
  Sender: TEVA
  Company Number: US-TEVA-VS-3177440

PATIENT
  Age: 16 Year
  Sex: Male

DRUGS (5)
  1. METHOTREXATE [Suspect]
     Active Substance: METHOTREXATE
     Indication: B-cell type acute leukaemia
     Route: 048
     Dates: start: 20220118, end: 20240314
  2. FLUCONAZOLE [Concomitant]
     Active Substance: FLUCONAZOLE
     Indication: Product used for unknown indication
     Dates: start: 20240103
  3. MERCAPTOPURINE [Suspect]
     Active Substance: MERCAPTOPURINE
     Indication: B-cell type acute leukaemia
     Dosage: 75 MG DAILY M-TH, 100MG DAILY F-SU
     Route: 048
     Dates: start: 20220118, end: 20240309
  4. PREDNISONE [Suspect]
     Active Substance: PREDNISONE
     Indication: B-cell type acute leukaemia
     Dosage: 45 MG DAILY IN AM, 40 MG DAILY IN PM (D1-5, D29-33, D57-61)
     Route: 048
     Dates: start: 20221107
  5. VINCRISTINE [Suspect]
     Active Substance: VINCRISTINE
     Indication: B-cell type acute leukaemia
     Dosage: 2 MILLIGRAM, ONCE, D1, D29, D57
     Route: 042
     Dates: start: 20230201

REACTIONS (7)
  - Platelet count decreased [Recovered/Resolved with Sequelae]
  - Dysuria [Recovered/Resolved]
  - Pyrexia [Recovered/Resolved]
  - Flank pain [Recovered/Resolved]
  - Anaemia [Recovered/Resolved with Sequelae]
  - Eyelid ptosis [Recovered/Resolved with Sequelae]
  - Epistaxis [Recovered/Resolved with Sequelae]

NARRATIVE: CASE EVENT DATE: 20230309
